FAERS Safety Report 16017286 (Version 3)
Quarter: 2019Q2

REPORT INFORMATION
  Report Type: Not Available
  Country: US (occurrence: US)
  Receive Date: 20190228
  Receipt Date: 20190417
  Transmission Date: 20190711
  Serious: Yes (Other)
  Sender: FDA-Public Use
  Company Number: US-NEUROCRINE BIOSCIENCES INC.-2019NBI00447

PATIENT
  Age: 48 Year
  Sex: Female

DRUGS (7)
  1. INGREZZA [Suspect]
     Active Substance: VALBENAZINE
     Indication: TARDIVE DYSKINESIA
     Route: 048
     Dates: start: 20170819, end: 20170826
  2. DIVALPROEX [Suspect]
     Active Substance: DIVALPROEX SODIUM
     Indication: PRODUCT USED FOR UNKNOWN INDICATION
  3. LORAZEPAM. [Suspect]
     Active Substance: LORAZEPAM
     Indication: PRODUCT USED FOR UNKNOWN INDICATION
  4. ESCITALOPRAM [Suspect]
     Active Substance: ESCITALOPRAM OXALATE
     Indication: PRODUCT USED FOR UNKNOWN INDICATION
  5. CIPROFLOXACIN. [Suspect]
     Active Substance: CIPROFLOXACIN
     Indication: INFLUENZA
  6. MEDROL [Suspect]
     Active Substance: METHYLPREDNISOLONE
     Indication: INFLUENZA
  7. INGREZZA [Suspect]
     Active Substance: VALBENAZINE
     Route: 048
     Dates: start: 20170827

REACTIONS (7)
  - Swollen tongue [Unknown]
  - Fatigue [Unknown]
  - Somnolence [Unknown]
  - Dysphagia [Unknown]
  - Migraine [Unknown]
  - Influenza [Unknown]
  - Therapeutic product effect decreased [None]

NARRATIVE: CASE EVENT DATE: 20190207
